FAERS Safety Report 20495671 (Version 2)
Quarter: 2022Q2

REPORT INFORMATION
  Report Type: Spontaneous
  Country: FR (occurrence: FR)
  Receive Date: 20220221
  Receipt Date: 20220527
  Transmission Date: 20220720
  Serious: Yes (Other)
  Sender: FDA-Public Use
  Company Number: FR-BIOGARAN-B22000133

PATIENT
  Age: 70 Year
  Sex: Female

DRUGS (2)
  1. TERIPARATIDE [Suspect]
     Active Substance: TERIPARATIDE
     Indication: Osteoporosis
     Dosage: UNK UNK, UNKNOWN
     Route: 065
  2. LEVOTHYROXINE [Concomitant]
     Active Substance: LEVOTHYROXINE
     Indication: Product used for unknown indication
     Dosage: UNK, UNKNOWN
     Route: 065

REACTIONS (6)
  - Swollen tongue [Recovering/Resolving]
  - Paraesthesia [Not Recovered/Not Resolved]
  - Eye irritation [Recovering/Resolving]
  - Oral discomfort [Unknown]
  - Dyspnoea [Not Recovered/Not Resolved]
  - Intentional product use issue [Unknown]
